FAERS Safety Report 5234812-1 (Version None)
Quarter: 2007Q1

REPORT INFORMATION
  Report Type: 
  Country: None (occurrence: None)
  Receive Date: 20070209
  Receipt Date: 20070130
  Transmission Date: 20070707
  Serious: Yes (Life-Threatening, Hospitalization)
  Sender: FDA-Public Use
  Company Number: DE-ABBOTT-07P-062-0357758-00

PATIENT
  Sex: Male

DRUGS (9)
  1. KALETRA [Suspect]
     Indication: HIV INFECTION
     Route: 048
     Dates: start: 20061201
  2. VINBLASTINE [Interacting]
     Indication: HODGKIN'S DISEASE
     Dates: start: 20061201
  3. TRUVADA [Concomitant]
     Indication: HIV INFECTION
     Route: 048
     Dates: start: 20061201
  4. DOXORUBICIN HCL [Concomitant]
     Indication: HODGKIN'S DISEASE
     Dates: start: 20061201
  5. BLEOMYCIN [Concomitant]
     Indication: HODGKIN'S DISEASE
     Dates: start: 20061201
  6. DACARBAZINE [Concomitant]
     Indication: HODGKIN'S DISEASE
     Dates: start: 20061201
  7. FLUCONAZOLE [Concomitant]
     Indication: DRUG USE FOR UNKNOWN INDICATION
     Route: 048
     Dates: start: 20061201
  8. COTRIM [Concomitant]
     Indication: DRUG USE FOR UNKNOWN INDICATION
     Dates: start: 20061201
  9. PALONOSETRONE [Concomitant]
     Indication: DRUG USE FOR UNKNOWN INDICATION
     Dates: start: 20061201

REACTIONS (5)
  - ABDOMINAL PAIN [None]
  - APLASIA [None]
  - DRUG INTERACTION [None]
  - ILEUS PARALYTIC [None]
  - NEUTROPENIA [None]
